FAERS Safety Report 4851128-3 (Version None)
Quarter: 2005Q4

REPORT INFORMATION
  Report Type: 
  Country: None (occurrence: None)
  Receive Date: 20051208
  Receipt Date: 20051130
  Transmission Date: 20060501
  Serious: Yes (Life-Threatening, Hospitalization)
  Sender: FDA-Public Use
  Company Number: US-2005-023171

PATIENT
  Age: 76 Year
  Sex: Female
  Weight: 87 kg

DRUGS (8)
  1. MAGNEVIST [Suspect]
     Indication: ANGIOGRAM
     Dosage: 60 ML, 1 DOSE, INTRAVENOUS
     Route: 042
     Dates: start: 20050930, end: 20050930
  2. HUMULIN N [Concomitant]
  3. CLONIDINE [Concomitant]
  4. CEFAZOLIN [Concomitant]
  5. ASPIRIN [Concomitant]
  6. GUAIFENESIN (GUAIFENESIN) [Concomitant]
  7. FUROSEMIDE [Concomitant]
  8. ZAROXOLYN [Concomitant]

REACTIONS (6)
  - BLOOD GLUCOSE DECREASED [None]
  - DIALYSIS [None]
  - ESSENTIAL TREMOR [None]
  - HAEMOGLOBIN DECREASED [None]
  - PROTEINURIA [None]
  - RENAL FAILURE ACUTE [None]
